FAERS Safety Report 21064426 (Version 1)
Quarter: 2022Q3

REPORT INFORMATION
  Report Type: Spontaneous
  Country: FR (occurrence: FR)
  Receive Date: 20220711
  Receipt Date: 20220711
  Transmission Date: 20221027
  Serious: Yes (Death, Hospitalization, Other)
  Sender: FDA-Public Use
  Company Number: FR-TRIS PHARMA, INC.-22FR010320

PATIENT

DRUGS (3)
  1. RISPERIDONE [Suspect]
     Active Substance: RISPERIDONE
     Indication: Schizophrenia
     Dosage: 6 MILLIGRAM, QD (FOR PAST 10 YEARS)
  2. RISPERIDONE [Suspect]
     Active Substance: RISPERIDONE
     Dosage: 12 MILLIGRAM, QD
  3. ARIPIPRAZOLE [Suspect]
     Active Substance: ARIPIPRAZOLE
     Indication: Schizophrenia
     Dosage: 30 MILLIGRAM, QD

REACTIONS (3)
  - Completed suicide [Fatal]
  - Suicidal ideation [Recovered/Resolved]
  - Drug ineffective [Recovered/Resolved]
